FAERS Safety Report 6504151-7 (Version None)
Quarter: 2009Q4

REPORT INFORMATION
  Report Type: 
  Country: None (occurrence: None)
  Receive Date: 20091217
  Receipt Date: 20091215
  Transmission Date: 20100525
  Serious: Yes (Hospitalization)
  Sender: FDA-Public Use
  Company Number: HK-WYE-H12412909

PATIENT
  Sex: Male
  Weight: 76 kg

DRUGS (10)
  1. TEMSIROLIMUS [Suspect]
     Indication: RENAL CELL CARCINOMA
     Route: 042
     Dates: start: 20090909
  2. METFORMIN HCL [Concomitant]
     Indication: HYPERGLYCAEMIA
     Route: 048
     Dates: start: 20091124, end: 20091208
  3. METFORMIN HCL [Concomitant]
     Route: 048
     Dates: start: 20091208
  4. LYSOZYME HYDROCHLORIDE [Concomitant]
     Indication: DRY MOUTH
     Dosage: UNKNOWN
     Dates: start: 20091103
  5. POTASSIUM PERMANGANATE [Concomitant]
     Indication: SKIN ULCER
     Route: 050
     Dates: start: 20091124, end: 20091216
  6. FUSIDIC ACID [Concomitant]
     Indication: SKIN ULCER
     Dosage: CREAM 2% TO RIGHT FOOT
     Route: 061
     Dates: start: 20091124, end: 20091215
  7. SIMVASTATIN [Concomitant]
     Indication: HYPERTRIGLYCERIDAEMIA
     Dosage: UNKNOWN
     Dates: start: 20091006
  8. BEVACIZUMAB [Suspect]
     Indication: RENAL CELL CARCINOMA
     Route: 042
     Dates: start: 20090909
  9. BEVACIZUMAB [Suspect]
     Dosage: NOT PROVIDED
     Route: 042
     Dates: start: 20091216
  10. NIFEDIPINE [Concomitant]
     Indication: HYPERTENSION
     Route: 048
     Dates: start: 20091029, end: 20091208

REACTIONS (1)
  - SKIN ULCER [None]
